FAERS Safety Report 23455707 (Version 1)
Quarter: 2024Q1

REPORT INFORMATION
  Report Type: Spontaneous
  Country: CA (occurrence: CA)
  Receive Date: 20240130
  Receipt Date: 20240130
  Transmission Date: 20240410
  Serious: Yes (Life-Threatening, Hospitalization, Other)
  Sender: FDA-Public Use
  Company Number: CA-MLMSERVICE-20240111-4771247-1

PATIENT
  Age: 43 Year
  Sex: Female

DRUGS (1)
  1. AMOXICILLIN\CLAVULANIC ACID [Suspect]
     Active Substance: AMOXICILLIN\CLAVULANIC ACID
     Indication: Sinusitis
     Dosage: 875 MILLIGRAM, TWO TIMES A DAY
     Route: 048
     Dates: start: 2016

REACTIONS (3)
  - Klebsiella infection [Recovered/Resolved]
  - Enterocolitis haemorrhagic [Recovered/Resolved]
  - Antibiotic associated colitis [Recovered/Resolved]

NARRATIVE: CASE EVENT DATE: 20160101
